FAERS Safety Report 4949568-7 (Version None)
Quarter: 2006Q1

REPORT INFORMATION
  Report Type: 
  Country: None (occurrence: None)
  Receive Date: 20060316
  Receipt Date: 20060313
  Transmission Date: 20060701
  Serious: Yes (Congenital Anomaly)
  Sender: FDA-Public Use
  Company Number: 006865

PATIENT

DRUGS (5)
  1. DIDANOSINE [Suspect]
     Indication: HIV INFECTION
     Dosage: 1 CAPS., QD, ORAL
     Route: 048
     Dates: start: 20040601
  2. LAMIVUDINE [Suspect]
     Indication: HIV INFECTION
     Dosage: 300 MG, QD, ORAL
     Route: 048
     Dates: start: 20040601
  3. NEVIRAPINE [Suspect]
     Indication: HIV INFECTION
     Dosage: 400 QD, ORAL  ; 400 MG, QD
     Route: 048
     Dates: start: 20040601, end: 20051208
  4. NEVIRAPINE [Suspect]
     Indication: HIV INFECTION
     Dosage: 400 QD, ORAL  ; 400 MG, QD
     Route: 048
     Dates: start: 20051219
  5. KALETRA [Suspect]
     Indication: HIV INFECTION
     Dosage: 1 CAPS., QD. ORAL
     Route: 048
     Dates: start: 20051208, end: 20051219

REACTIONS (2)
  - DRUG EXPOSURE DURING PREGNANCY [None]
  - TRISOMY 21 [None]
